FAERS Safety Report 23793483 (Version 3)
Quarter: 2024Q3

REPORT INFORMATION
  Report Type: Report from Study
  Country: ES (occurrence: ES)
  Receive Date: 20240429
  Receipt Date: 20240710
  Transmission Date: 20241017
  Serious: Yes (Other)
  Sender: NOVARTIS
  Company Number: ES-002147023-NVSC2024ES086509

PATIENT
  Age: 8 Year
  Sex: Male

DRUGS (7)
  1. VIJOICE [Suspect]
     Active Substance: ALPELISIB
     Indication: PIK3CA related overgrowth spectrum
     Dosage: 100 MG, QD
     Route: 048
     Dates: start: 20200224
  2. VIJOICE [Suspect]
     Active Substance: ALPELISIB
     Dosage: 150 MG, QD
     Route: 048
     Dates: start: 202009
  3. VIJOICE [Suspect]
     Active Substance: ALPELISIB
     Dosage: 100 MG, QD (FOR 2 WEEKS)
     Route: 048
  4. VIJOICE [Suspect]
     Active Substance: ALPELISIB
     Dosage: 150 MG, QD
     Route: 048
  5. VIJOICE [Suspect]
     Active Substance: ALPELISIB
     Dosage: 200 MG, QD
     Route: 048
     Dates: start: 202205
  6. VIJOICE [Suspect]
     Active Substance: ALPELISIB
     Dosage: 100 MG, QD
     Route: 048
     Dates: start: 202303, end: 202304
  7. VIJOICE [Suspect]
     Active Substance: ALPELISIB
     Dosage: 100 MG, QD
     Route: 048
     Dates: start: 202310

REACTIONS (5)
  - Growth retardation [Recovered/Resolved]
  - PIK3CA related overgrowth spectrum [Unknown]
  - Disease progression [Unknown]
  - Diarrhoea [Recovered/Resolved]
  - Therapy partial responder [Unknown]

NARRATIVE: CASE EVENT DATE: 20210224
